APPROVED DRUG PRODUCT: CORGARD
Active Ingredient: NADOLOL
Strength: 160MG
Dosage Form/Route: TABLET;ORAL
Application: N018063 | Product #004
Applicant: USWM LLC
Approved: Approved Prior to Jan 1, 1982 | RLD: No | RS: No | Type: DISCN